FAERS Safety Report 6644468-9 (Version None)
Quarter: 2010Q1

REPORT INFORMATION
  Report Type: 
  Country: None (occurrence: None)
  Receive Date: 20100319
  Receipt Date: 20100319
  Transmission Date: 20100710
  Serious: Yes (Hospitalization)
  Sender: FDA-Public Use
  Company Number: None

PATIENT
  Age: 43 Year
  Sex: Male
  Weight: 87 kg

DRUGS (16)
  1. METHADONE [Suspect]
     Indication: PROCEDURAL PAIN
     Dosage: 40MG TID PO, RECENT
     Route: 048
  2. NORVASC [Concomitant]
  3. CLONAZEPAM [Concomitant]
  4. FERROUS SULFATE TAB [Concomitant]
  5. GABAPENTIN [Concomitant]
  6. VACTOBACILLUS [Concomitant]
  7. LAMOTRIGINE [Concomitant]
  8. LISINOPRIL [Concomitant]
  9. KEPPRA [Concomitant]
  10. PANTOPRAZOLE [Concomitant]
  11. SULDRAZOLE [Concomitant]
  12. TEMAZEPAM [Concomitant]
  13. DOCUSATE [Concomitant]
  14. DILAUDID [Concomitant]
  15. VICODIN [Concomitant]
  16. TYLENOL-500 [Concomitant]

REACTIONS (7)
  - DELIRIUM [None]
  - DUODENAL ULCER [None]
  - HYPERSOMNIA [None]
  - HYPOTENSION [None]
  - OVERDOSE [None]
  - RENAL FAILURE ACUTE [None]
  - RHABDOMYOLYSIS [None]
